FAERS Safety Report 5613816-0 (Version None)
Quarter: 2008Q1

REPORT INFORMATION
  Report Type: 
  Country: None (occurrence: None)
  Receive Date: 20080130
  Receipt Date: 20071102
  Transmission Date: 20080703
  Serious: Yes (Other)
  Sender: FDA-Public Use
  Company Number: USEN-78KKV5

PATIENT
  Sex: Male

DRUGS (1)
  1. DURAPREP [Suspect]
     Indication: PREOPERATIVE CARE
     Dosage: TOPICAL SINGLE APPLICATION
     Route: 061

REACTIONS (2)
  - PENIS DISORDER [None]
  - SKIN EXFOLIATION [None]
